FAERS Safety Report 13663166 (Version 2)
Quarter: 2017Q3

REPORT INFORMATION
  Report Type: Other
  Country: CA (occurrence: CA)
  Receive Date: 20170619
  Receipt Date: 20170726
  Transmission Date: 20171127
  Serious: Yes (Life-Threatening, Other)
  Sender: FDA-Public Use
  Company Number: CA-APOTEX-2017AP012886

PATIENT
  Age: 70 Year
  Sex: Male

DRUGS (4)
  1. APO-LOSARTAN [Suspect]
     Active Substance: LOSARTAN
     Indication: HYPERTENSION
     Dosage: 100 MG, QD
     Route: 048
  2. AMLODIPINE [Concomitant]
     Active Substance: AMLODIPINE BESYLATE
     Indication: PRODUCT USED FOR UNKNOWN INDICATION
     Route: 065
  3. CELEBREX [Concomitant]
     Active Substance: CELECOXIB
     Indication: PRODUCT USED FOR UNKNOWN INDICATION
     Route: 065
  4. GLEEVEC [Concomitant]
     Active Substance: IMATINIB MESYLATE
     Indication: PRODUCT USED FOR UNKNOWN INDICATION
     Route: 065

REACTIONS (5)
  - Product substitution issue [Recovering/Resolving]
  - Blood pressure increased [Recovering/Resolving]
  - Therapeutic response changed [Recovering/Resolving]
  - Condition aggravated [Recovering/Resolving]
  - Cerebrovascular accident [Recovering/Resolving]
